FAERS Safety Report 5083823-8 (Version None)
Quarter: 2006Q3

REPORT INFORMATION
  Report Type: 
  Country: None (occurrence: None)
  Receive Date: 20060817
  Receipt Date: 20060817
  Transmission Date: 20061208
  Serious: Yes (Hospitalization)
  Sender: FDA-Public Use
  Company Number: None

PATIENT
  Age: 21 Year
  Sex: Female

DRUGS (3)
  1. CEFTRIAXONE [Suspect]
     Indication: CELLULITIS
     Dosage: 1 -ONE- GM  ONCE IV DRIP
     Route: 041
     Dates: start: 20060726, end: 20060726
  2. CEFTRIAXONE [Suspect]
     Indication: INCISIONAL DRAINAGE
     Dosage: 1 -ONE- GM  ONCE IV DRIP
     Route: 041
     Dates: start: 20060726, end: 20060726
  3. CEFTRIAXONE [Suspect]
     Indication: PURULENCE
     Dosage: 1 -ONE- GM  ONCE IV DRIP
     Route: 041
     Dates: start: 20060726, end: 20060726

REACTIONS (12)
  - BLOOD PRESSURE DECREASED [None]
  - DIZZINESS [None]
  - FAECAL INCONTINENCE [None]
  - FLUSHING [None]
  - INFUSION RELATED REACTION [None]
  - PHOTOPSIA [None]
  - PRURITUS [None]
  - SYNCOPE [None]
  - THROAT TIGHTNESS [None]
  - UNEVALUABLE EVENT [None]
  - URINARY INCONTINENCE [None]
  - URTICARIA [None]
